FAERS Safety Report 9474709 (Version 3)
Quarter: 2014Q1

REPORT INFORMATION
  Report Type: Spontaneous
  Country: NO (occurrence: NO)
  Receive Date: 20130823
  Receipt Date: 20140123
  Transmission Date: 20141002
  Serious: Yes (Life-Threatening, Hospitalization)
  Sender: FDA-Public Use
  Company Number: NO-WATSON-2013-15004

PATIENT
  Age: 72 Year
  Sex: Male

DRUGS (40)
  1. MIDAZOLAM [Suspect]
     Indication: SEDATION
     Dosage: 26/4-27/4: 10 MG/H, 27/4-28/4: 7 MG/H, 28/4-29/4: 3 MG/H
     Route: 065
     Dates: start: 20130426, end: 20130429
  2. FENTANYL [Suspect]
     Indication: SEDATION
     Dosage: 250 MICROGRAM/H, 20130426-20130428: 250MCG/H, 20130428-20130430: 100 MCG/H
     Route: 062
     Dates: start: 20130426, end: 20130430
  3. AMINOPHYLLINE [Suspect]
     Indication: ASTHMA
     Dosage: 50 MG, Q1H
     Route: 065
     Dates: start: 20130516, end: 20130520
  4. STESOLID [Suspect]
     Indication: CONVULSION
     Dosage: 5 MG, DAILY
     Route: 065
     Dates: start: 20130429, end: 20130503
  5. DEXDOR [Suspect]
     Indication: SEDATION
     Dosage: 10 ?G/KG, 1 MINUTES
     Route: 065
     Dates: start: 20130428, end: 20130501
  6. CATAPRESAN [Suspect]
     Indication: SEDATION
     Dosage: 60 MICROGRAMS/HOUR
     Route: 065
     Dates: start: 20130502, end: 20130509
  7. DIFLUCAN [Interacting]
     Indication: FUNGAL INFECTION
     Dosage: 6/5: 800 MG X 1, 7/5-20/5: 400 MG X 1, 21/5-22/5: 200 MG X 1
     Route: 065
     Dates: start: 20130506, end: 20130522
  8. PRO-EPANUTIN [Interacting]
     Indication: CONVULSION
     Dosage: 30/4: 2000MG BOLUS, 1/5: 300MG FNE X 2, 2/5-10/5: 400MG FNE X 2, 11/5: 300MG FNE X 2, 12/5: 300MGX1
     Route: 065
     Dates: start: 20130430, end: 20130512
  9. ANEXATE [Suspect]
     Indication: REVERSAL OF SEDATION
     Dosage: 0.5 MG, TID
     Route: 065
     Dates: start: 20130516, end: 20130516
  10. PROPOFOL [Suspect]
     Indication: CONVULSION
     Dosage: 50 MG, 10 INTERVAL= 1 DAY(S)
     Route: 065
     Dates: start: 20130427, end: 20130428
  11. FRAGMIN [Concomitant]
     Indication: THROMBOSIS PROPHYLAXIS
     Dosage: 2500-5000 IU X 1
     Route: 065
     Dates: start: 20130428, end: 20130522
  12. NALOXONE [Concomitant]
     Indication: PRODUCT USED FOR UNKNOWN INDICATION
     Dosage: 0.4 MG, DAILY
     Route: 065
     Dates: start: 20130516, end: 20130516
  13. SOMAC [Concomitant]
     Indication: PROPHYLAXIS AGAINST GASTROINTESTINAL ULCER
     Dosage: 40 MG, DAILY
     Route: 065
     Dates: start: 20130426, end: 20130522
  14. LAXOBERAL [Concomitant]
     Indication: PRODUCT USED FOR UNKNOWN INDICATION
     Dosage: 10-15 GTT X 1-2
     Route: 065
     Dates: start: 20130427, end: 20130522
  15. BACTRIM [Concomitant]
     Indication: INFECTION
     Dosage: 20 ML, BID
     Route: 065
     Dates: start: 20130519, end: 20130522
  16. SULFAMETHOXAZOLE AND TRIMETHOPRIM [Concomitant]
     Indication: INFECTION
     Dosage: 160 MG, BID
     Route: 065
     Dates: start: 20130517, end: 20130518
  17. RELISTOR [Concomitant]
     Indication: PRODUCT USED FOR UNKNOWN INDICATION
     Dosage: 12 MG, Q2D
     Route: 065
     Dates: start: 20130427, end: 20130430
  18. VANCOMYCIN [Concomitant]
     Indication: INFECTION
     Dosage: 1 MG, BID
     Route: 065
     Dates: start: 20130516, end: 20130522
  19. MERONEM [Concomitant]
     Indication: INFECTION
     Dosage: 1 G, TID
     Route: 065
     Dates: start: 20130505, end: 20130512
  20. ATROVENT [Concomitant]
     Indication: ASTHMA
     Dosage: 0.5 MG, 6 DAY
     Route: 065
     Dates: start: 20130426, end: 20130522
  21. ESIDREX [Concomitant]
     Indication: PRODUCT USED FOR UNKNOWN INDICATION
     Dosage: 25 MG, DAILY; USED TO INCREASE SODIUM EXCREATION
     Route: 065
     Dates: start: 20130430, end: 20130507
  22. SOLU-CORTEF [Concomitant]
     Indication: ASTHMA
     Dosage: 100 MG, BID; FROM 20130426: 100 MG X 2, FROM 20130509: 50 MG X 2
     Route: 065
     Dates: start: 20130426, end: 20130521
  23. ACTRAPID [Concomitant]
     Indication: BLOOD GLUCOSE ABNORMAL
     Dosage: 1 IU/ML, UNKNOWN
     Route: 065
     Dates: start: 20130426, end: 20130522
  24. KAJOS [Concomitant]
     Indication: MINERAL SUPPLEMENTATION
     Dosage: 30 ML, TID; FROM 20130501: 30 ML X 3, FROM 20130504: 15  ML X 2
     Route: 048
     Dates: start: 20130501, end: 20130517
  25. SINGULAIR [Concomitant]
     Indication: ASTHMA
     Dosage: 10 MG, DAILY
     Route: 065
     Dates: start: 20130513, end: 20130522
  26. SPIRIX [Concomitant]
     Indication: DIURETIC THERAPY
     Dosage: 50 MG, DAILY
     Route: 065
  27. SPIRIX [Concomitant]
     Dates: start: 20130503, end: 20130522
  28. KLEXANE [Concomitant]
     Indication: THROMBOSIS PROPHYLAXIS
     Dosage: 40 MG, DAILY
     Route: 065
     Dates: start: 20130426, end: 20130427
  29. KEPPRA [Concomitant]
     Indication: EPILEPSY
     Dosage: 500 MG, BID; FROM 20130508: 500 MG X 2, FROM 20130510: 750 MG X 2
     Route: 065
     Dates: start: 20130508, end: 20130522
  30. POTASSIUM CHLORIDE [Concomitant]
     Indication: MINERAL SUPPLEMENTATION
     Dosage: 20 MMOL, DAILY
     Route: 048
     Dates: start: 20130517, end: 20130522
  31. POTASSIUM CHLORIDE [Concomitant]
     Indication: MINERAL SUPPLEMENTATION
  32. DALACIN [Concomitant]
     Indication: INFECTION
     Dosage: 600 MG, TID
     Route: 065
     Dates: start: 20130428, end: 20130428
  33. AFIPRAN [Concomitant]
     Indication: PRODUCT USED FOR UNKNOWN INDICATION
     Dosage: 10 MG, TID
     Route: 065
     Dates: start: 20130427, end: 20130504
  34. BURINEX [Concomitant]
     Indication: PRODUCT USED FOR UNKNOWN INDICATION
     Dosage: 1 MG, TID; 0,5-1 MG X 3-4
     Route: 065
     Dates: start: 20130505, end: 20130522
  35. NOREPINEPHRINE [Concomitant]
     Indication: VASOPRESSIVE THERAPY
     Dosage: UNK; TITRATED TO EFFECT, INTERMITTENT USE AS NEEDED
     Route: 065
  36. VENTOLIN [Concomitant]
     Indication: ASTHMA
     Dosage: 5 MG, 6 DAYS
     Route: 065
     Dates: start: 20130426, end: 20130522
  37. CETIRIZINE [Concomitant]
     Indication: HYPERSENSITIVITY
     Dosage: 10 ML, DAILY
     Route: 065
     Dates: start: 20130507, end: 20130522
  38. RIVOTRIL [Concomitant]
     Indication: EPILEPSY
     Dosage: 0.5 MG, QID
     Route: 065
     Dates: start: 20130509, end: 20130516
  39. DIAMOX [Concomitant]
     Indication: METABOLIC ALKALOSIS
     Dosage: 250 MG, BID
     Route: 065
  40. CEFUROXIME [Concomitant]
     Indication: INFECTION
     Dosage: 750 MG, TID
     Route: 065
     Dates: start: 20130426, end: 20130501

REACTIONS (3)
  - Coma [Recovered/Resolved]
  - Drug effect prolonged [Recovered/Resolved]
  - Drug interaction [Recovered/Resolved]
